FAERS Safety Report 20582746 (Version 1)
Quarter: 2022Q1

REPORT INFORMATION
  Report Type: Spontaneous
  Country: IN (occurrence: IN)
  Receive Date: 20220311
  Receipt Date: 20220311
  Transmission Date: 20220423
  Serious: Yes (Other)
  Sender: FDA-Public Use
  Company Number: IN-PFIZER INC-202200230812

PATIENT
  Age: 56 Year
  Sex: Female

DRUGS (5)
  1. PALBOCICLIB [Suspect]
     Active Substance: PALBOCICLIB
     Dosage: 125MG 1 TAB ONCE DAILY FOR 21 DAYS, FOLLOWED BY GAP FOR 7 DAYS
     Route: 048
     Dates: start: 20211209
  2. ZOLEDRONIC ACID [Concomitant]
     Active Substance: ZOLEDRONIC ACID
     Dosage: 4 MG
     Route: 042
     Dates: start: 20211028
  3. LETROZOLE [Concomitant]
     Active Substance: LETROZOLE
     Dosage: 2.5 MG, 1X/DAY
     Dates: start: 202111
  4. ACECLOFENAC [Concomitant]
     Active Substance: ACECLOFENAC
  5. DEXAMETHASONE [Concomitant]
     Active Substance: DEXAMETHASONE

REACTIONS (9)
  - Carcinoembryonic antigen increased [Unknown]
  - Blood pressure increased [Unknown]
  - COVID-19 [Recovered/Resolved]
  - Asthenia [Unknown]
  - Constipation [Unknown]
  - Carbohydrate antigen 15-3 increased [Unknown]
  - White blood cell count decreased [Unknown]
  - Haemoglobin decreased [Unknown]
  - Red blood cell count decreased [Unknown]

NARRATIVE: CASE EVENT DATE: 20220103
